FAERS Safety Report 7800319-8 (Version None)
Quarter: 2011Q4

REPORT INFORMATION
  Report Type: 
  Country: None (occurrence: None)
  Receive Date: 20111006
  Receipt Date: 20110926
  Transmission Date: 20120403
  Serious: Yes (Hospitalization, Other)
  Sender: FDA-Public Use
  Company Number: US-BAYER-201034640NA

PATIENT
  Sex: Female
  Weight: 73 kg

DRUGS (3)
  1. SYNTHROID [Concomitant]
  2. YAZ [Suspect]
     Indication: DYSMENORRHOEA
     Dosage: 3 MONTH SUPPLY OF SAMPLES GIVEN TO THE PATIENT
     Dates: start: 20070501
  3. YAZ [Suspect]
     Indication: CONTRACEPTION

REACTIONS (5)
  - CHOLECYSTITIS ACUTE [None]
  - GALLBLADDER NON-FUNCTIONING [None]
  - PAIN [None]
  - CHOLELITHIASIS [None]
  - ABDOMINAL PAIN [None]
